FAERS Safety Report 12821169 (Version 1)
Quarter: 2016Q4

REPORT INFORMATION
  Report Type: Spontaneous
  Country: DE (occurrence: DE)
  Receive Date: 20161007
  Receipt Date: 20161007
  Transmission Date: 20170207
  Serious: Yes (Other)
  Sender: FDA-Public Use
  Company Number: DE-SUN PHARMACEUTICAL INDUSTRIES LTD-2016R1-125381

PATIENT
  Age: 1 Day
  Sex: Male
  Weight: 4.32 kg

DRUGS (5)
  1. TRAMADOL. [Suspect]
     Active Substance: TRAMADOL
     Indication: PAIN
     Dosage: 300 MG/D DOSAGE REDUCTION TO 25 MG/D, TREATMENT INTERRUPTION IN GW 24+5
     Route: 064
  2. AMITRIPTYLIN [Concomitant]
     Active Substance: AMITRIPTYLINE
     Indication: PAIN
     Dosage: 25 MG, QD
     Route: 064
  3. FOLIO [Concomitant]
     Active Substance: FOLIC ACID
     Indication: PROPHYLAXIS OF NEURAL TUBE DEFECT
     Dosage: 0.4 MG, QD
     Route: 064
  4. GRIPPEIMPFSTOFF [Concomitant]
     Active Substance: INFLUENZA VIRUS VACCINE
     Indication: IMMUNISATION
     Route: 064
  5. GABAPENTIN. [Concomitant]
     Active Substance: GABAPENTIN
     Indication: PAIN
     Dosage: 800 MG, QD
     Route: 064

REACTIONS (3)
  - Drug withdrawal syndrome neonatal [Recovered/Resolved]
  - Foetal exposure during pregnancy [Recovered/Resolved]
  - Convulsion neonatal [Recovered/Resolved]

NARRATIVE: CASE EVENT DATE: 20160301
